FAERS Safety Report 24882205 (Version 1)
Quarter: 2025Q1

REPORT INFORMATION
  Report Type: Spontaneous
  Country: US (occurrence: US)
  Receive Date: 20250124
  Receipt Date: 20250124
  Transmission Date: 20250408
  Serious: Yes (Hospitalization)
  Sender: MSN LABORATORIES PRIVATE LIMITED
  Company Number: US-MSNLABS-2025MSNLIT00172

PATIENT

DRUGS (3)
  1. HALOPERIDOL [Suspect]
     Active Substance: HALOPERIDOL
     Indication: Alcohol use disorder
     Route: 065
  2. LORAZEPAM [Suspect]
     Active Substance: LORAZEPAM
     Indication: Alcohol use disorder
     Route: 065
  3. THIAMINE [Suspect]
     Active Substance: THIAMINE
     Indication: Alcohol use disorder
     Route: 042

REACTIONS (1)
  - Drug ineffective [Unknown]
